FAERS Safety Report 7164547-X (Version None)
Quarter: 2010Q4

REPORT INFORMATION
  Report Type: 
  Country: None (occurrence: None)
  Receive Date: 20101215
  Receipt Date: 20101206
  Transmission Date: 20110411
  Serious: Yes (Hospitalization)
  Sender: FDA-Public Use
  Company Number: US-ASTRAZENECA-2010SE57611

PATIENT
  Age: 60 Year
  Sex: Female

DRUGS (6)
  1. MERREM [Suspect]
     Indication: BRAIN ABSCESS
     Route: 042
  2. ATORVASTATIN [Concomitant]
  3. GLIPIZIDE [Concomitant]
  4. TELMISARTAN [Concomitant]
  5. CALCIUM ACETATE [Concomitant]
  6. LEVETIRACETAM [Concomitant]
     Indication: CONVULSION

REACTIONS (1)
  - VANISHING BILE DUCT SYNDROME [None]
